FAERS Safety Report 9140282 (Version 6)
Quarter: 2013Q2

REPORT INFORMATION
  Report Type: Spontaneous
  Country: US (occurrence: US)
  Receive Date: 20130305
  Receipt Date: 20130401
  Transmission Date: 20140414
  Serious: Yes (Death)
  Sender: FDA-Public Use
  Company Number: US-JNJFOC-20130300421

PATIENT
  Sex: Female
  Weight: 56.7 kg

DRUGS (6)
  1. XARELTO [Suspect]
     Indication: HIP ARTHROPLASTY
     Dosage: ONLY ONE DOSE GIVEN
     Route: 048
     Dates: start: 20130223
  2. XARELTO [Suspect]
     Indication: THROMBOSIS PROPHYLAXIS
     Dosage: ONLY ONE DOSE GIVEN
     Route: 048
     Dates: start: 20130223
  3. XARELTO [Suspect]
     Indication: HIP FRACTURE
     Dosage: ONLY ONE DOSE GIVEN
     Route: 048
     Dates: start: 20130223
  4. OMEPRAZOLE [Concomitant]
     Dosage: 2011
     Route: 048
     Dates: start: 2011
  5. NAMENDA [Concomitant]
     Route: 048
     Dates: start: 2012
  6. CRESTOR [Concomitant]
     Dosage: AM
     Route: 048
     Dates: start: 2012

REACTIONS (2)
  - Haemorrhage intracranial [Fatal]
  - Subdural haemorrhage [Fatal]
